FAERS Safety Report 17048320 (Version 1)
Quarter: 2019Q4

REPORT INFORMATION
  Report Type: Spontaneous
  Country: US (occurrence: US)
  Receive Date: 20191118
  Receipt Date: 20191118
  Transmission Date: 20200122
  Serious: Yes (Death)
  Sender: FDA-Public Use
  Company Number: None

PATIENT
  Sex: Male

DRUGS (2)
  1. ASPIRIN. [Concomitant]
     Active Substance: ASPIRIN
  2. EFFIENT [Suspect]
     Active Substance: PRASUGREL HYDROCHLORIDE
     Route: 048

REACTIONS (7)
  - Hemiparesis [None]
  - Haemorrhage intracranial [None]
  - Respiratory distress [None]
  - Hemianaesthesia [None]
  - Basal ganglia haemorrhage [None]
  - Fall [None]
  - Blood pressure increased [None]
